FAERS Safety Report 18783490 (Version 2)
Quarter: 2021Q2

REPORT INFORMATION
  Report Type: Spontaneous
  Country: US (occurrence: US)
  Receive Date: 20210125
  Receipt Date: 20210422
  Transmission Date: 20210717
  Serious: Yes (Other)
  Sender: FDA-Public Use
  Company Number: NVSC2021US011847

PATIENT
  Age: 78 Year
  Sex: Female

DRUGS (3)
  1. RECLAST [Suspect]
     Active Substance: ZOLEDRONIC ACID
     Indication: PRODUCT USED FOR UNKNOWN INDICATION
     Dosage: UNK
     Route: 041
  2. RECLAST [Suspect]
     Active Substance: ZOLEDRONIC ACID
     Dosage: UNK
     Route: 041
     Dates: start: 20210115
  3. PREDNISONE. [Concomitant]
     Active Substance: PREDNISONE
     Indication: PRODUCT USED FOR UNKNOWN INDICATION
     Dosage: UNK UNK, QID
     Route: 065

REACTIONS (22)
  - Visual field defect [Unknown]
  - Malaise [Unknown]
  - Ocular discomfort [Not Recovered/Not Resolved]
  - Swelling of eyelid [Unknown]
  - Agitation [Unknown]
  - Headache [Unknown]
  - Hypersomnia [Unknown]
  - Asthenia [Unknown]
  - Fatigue [Unknown]
  - Loss of consciousness [Unknown]
  - Insomnia [Unknown]
  - Abdominal discomfort [Unknown]
  - Eye pain [Unknown]
  - Photophobia [Unknown]
  - Visual acuity tests abnormal [Unknown]
  - Pruritus [Unknown]
  - Decreased appetite [Unknown]
  - Nausea [Unknown]
  - Ocular vascular disorder [Unknown]
  - Vision blurred [Unknown]
  - Eye irritation [Unknown]
  - Visual impairment [Unknown]

NARRATIVE: CASE EVENT DATE: 20210116
